FAERS Safety Report 5252908-5 (Version None)
Quarter: 2007Q1

REPORT INFORMATION
  Report Type: 
  Country: None (occurrence: None)
  Receive Date: 20070227
  Receipt Date: 20070215
  Transmission Date: 20070707
  Serious: Yes (Other)
  Sender: FDA-Public Use
  Company Number: 2007S1000041

PATIENT
  Sex: Female

DRUGS (1)
  1. ACITRETIN [Suspect]
     Dosage: VAG
     Route: 067

REACTIONS (3)
  - FOETAL DISORDER [None]
  - PREGNANCY [None]
  - TRANSMISSION OF DRUG VIA SEMEN [None]
